FAERS Safety Report 9376382 (Version 2)
Quarter: 2013Q3

REPORT INFORMATION
  Report Type: Spontaneous
  Country: FR (occurrence: FR)
  Receive Date: 20130701
  Receipt Date: 20130813
  Transmission Date: 20140515
  Serious: Yes (Hospitalization)
  Sender: FDA-Public Use
  Company Number: FR-JNJFOC-20130613021

PATIENT
  Age: 38 Year
  Sex: Male
  Weight: 93 kg

DRUGS (1)
  1. XEPLION [Suspect]
     Indication: SCHIZOPHRENIA, DISORGANISED TYPE
     Route: 030
     Dates: start: 20130222, end: 20130614

REACTIONS (2)
  - Dissociation [Recovered/Resolved with Sequelae]
  - Psychotic disorder [Unknown]
